FAERS Safety Report 5248378-3 (Version None)
Quarter: 2007Q1

REPORT INFORMATION
  Report Type: 
  Country: None (occurrence: None)
  Receive Date: 20070227
  Receipt Date: 20070219
  Transmission Date: 20070707
  Serious: Yes (Other)
  Sender: FDA-Public Use
  Company Number: US-SHR-US-2007-006365

PATIENT
  Age: 64 Year
  Sex: Female

DRUGS (4)
  1. MAGNEVIST [Suspect]
     Indication: ANGIOGRAM
     Dosage: 60 ML, 1 DOSE
     Route: 042
     Dates: start: 20030501, end: 20030501
  2. MAGNEVIST [Suspect]
     Dosage: 60 ML, 1 DOSE
     Route: 042
     Dates: start: 20040224, end: 20040224
  3. MAGNEVIST [Suspect]
     Dosage: 20 ML, 1 DOSE
     Route: 042
     Dates: start: 20050210, end: 20050210
  4. MAGNEVIST [Suspect]
     Dosage: 20 ML, 1 DOSE
     Route: 042
     Dates: start: 20050506, end: 20050506

REACTIONS (1)
  - NEPHROGENIC FIBROSING DERMOPATHY [None]
